FAERS Safety Report 6165071-3 (Version None)
Quarter: 2009Q2

REPORT INFORMATION
  Report Type: 
  Country: None (occurrence: None)
  Receive Date: 20090423
  Receipt Date: 20090420
  Transmission Date: 20091009
  Serious: Yes (Other)
  Sender: FDA-Public Use
  Company Number: US-AVENTIS-200913350US

PATIENT
  Age: 78 Year
  Sex: Male

DRUGS (2)
  1. LANTUS [Suspect]
     Dosage: DOSE: 14-16
     Route: 058
     Dates: start: 20060101
  2. OPTICLIK (INSULIN INJECTION PEN) [Suspect]
     Dates: start: 20060101

REACTIONS (4)
  - CEREBROVASCULAR ACCIDENT [None]
  - FALL [None]
  - HIP ARTHROPLASTY [None]
  - MYOCARDIAL INFARCTION [None]
